FAERS Safety Report 22102172 (Version 2)
Quarter: 2023Q1

REPORT INFORMATION
  Report Type: Other
  Country: HK (occurrence: None)
  Receive Date: 20230316
  Receipt Date: 20230324
  Transmission Date: 20230418
  Serious: Yes (Death)
  Sender: FDA-Public Use
  Company Number: HK-ROCHE-3309413

PATIENT
  Sex: Male

DRUGS (1)
  1. UNSPECIFIED INGREDIENT [Suspect]
     Active Substance: UNSPECIFIED INGREDIENT
     Indication: Product used for unknown indication
     Route: 065

REACTIONS (1)
  - Death [Fatal]
